FAERS Safety Report 9992609 (Version 3)
Quarter: 2014Q1

REPORT INFORMATION
  Report Type: Spontaneous
  Country: US (occurrence: US)
  Receive Date: 20140310
  Receipt Date: 20140317
  Transmission Date: 20141002
  Serious: Yes (Hospitalization, Other)
  Sender: FDA-Public Use
  Company Number: US-GILEAD-2014-0096273

PATIENT
  Age: 66 Year
  Sex: Male

DRUGS (3)
  1. LETAIRIS [Suspect]
     Indication: PRODUCT USED FOR UNKNOWN INDICATION
     Dosage: 10 MG, QD
     Route: 048
     Dates: start: 201311
  2. TYVASO [Concomitant]
  3. REVATIO [Concomitant]

REACTIONS (3)
  - Stent placement [Unknown]
  - Unevaluable event [Unknown]
  - Haemoptysis [Unknown]
